FAERS Safety Report 8960470 (Version 1)
Quarter: 2012Q4

REPORT INFORMATION
  Report Type: Spontaneous
  Country: US (occurrence: None)
  Receive Date: 20121211
  Receipt Date: 20121211
  Transmission Date: 20130627
  Serious: No
  Sender: FDA-Public Use
  Company Number: None

PATIENT
  Sex: Male
  Weight: 99 kg

DRUGS (1)
  1. CISPLATIN [Suspect]
     Dosage: day 1 day 22 dose dense ciplastin

REACTIONS (1)
  - White blood cell count decreased [None]
